FAERS Safety Report 24548241 (Version 1)
Quarter: 2024Q4

REPORT INFORMATION
  Report Type: Spontaneous
  Country: EG (occurrence: EG)
  Receive Date: 20241025
  Receipt Date: 20241025
  Transmission Date: 20250114
  Serious: Yes (Hospitalization, Other)
  Sender: JUBILANT
  Company Number: None

PATIENT
  Age: 43 Year
  Sex: Female

DRUGS (1)
  1. LEVOFLOXACIN [Suspect]
     Active Substance: LEVOFLOXACIN
     Indication: Ear infection
     Dosage: 500 MG, 2 TIMES PER DAY
     Route: 048

REACTIONS (3)
  - Neurotoxicity [Not Recovered/Not Resolved]
  - Complex regional pain syndrome [Recovering/Resolving]
  - Laryngospasm [Not Recovered/Not Resolved]
